FAERS Safety Report 18564375 (Version 1)
Quarter: 2020Q4

REPORT INFORMATION
  Report Type: Report from Study
  Country: US (occurrence: US)
  Receive Date: 20201201
  Receipt Date: 20201201
  Transmission Date: 20210114
  Serious: Yes (Hospitalization, Other)
  Sender: FDA-Public Use
  Company Number: US-MYLANLABS-2020M1097801

PATIENT
  Age: 73 Year
  Sex: Male

DRUGS (2)
  1. HEPARIN [Suspect]
     Active Substance: HEPARIN SODIUM
     Indication: THROMBOSIS PROPHYLAXIS
     Dosage: GIVEN EVERY 8 HOURS AFTER SURGERY
     Route: 065
  2. HEPARIN [Suspect]
     Active Substance: HEPARIN SODIUM
     Indication: THROMBOSIS PROPHYLAXIS
     Dosage: GIVEN WITHIN 2 HOURS OF INITIATING SURGERY (SINGLE DOSE)
     Route: 058

REACTIONS (2)
  - Heparin-induced thrombocytopenia [Unknown]
  - Haemothorax [Unknown]
